FAERS Safety Report 5241984-1 (Version None)
Quarter: 2007Q1

REPORT INFORMATION
  Report Type: 
  Country: None (occurrence: None)
  Receive Date: 20070220
  Receipt Date: 20070208
  Transmission Date: 20070707
  Serious: Yes (Death, Other)
  Sender: FDA-Public Use
  Company Number: US-PFIZER INC-2007010982

PATIENT
  Sex: Male
  Weight: 77.1 kg

DRUGS (6)
  1. LIPITOR [Suspect]
     Indication: BLOOD CHOLESTEROL INCREASED
  2. LISINOPRIL [Concomitant]
  3. RANITIDINE [Concomitant]
  4. XANAX [Concomitant]
  5. LORTAB [Concomitant]
  6. ALL OTHER THERAPEUTIC PRODUCTS [Concomitant]

REACTIONS (1)
  - RHABDOMYOLYSIS [None]
